FAERS Safety Report 7553096-2 (Version None)
Quarter: 2011Q2

REPORT INFORMATION
  Report Type: 
  Country: None (occurrence: None)
  Receive Date: 20110616
  Receipt Date: 20090625
  Transmission Date: 20111010
  Serious: Yes (Other)
  Sender: FDA-Public Use
  Company Number: US-BAYER-200924658NA

PATIENT
  Age: 73 Year
  Sex: Female
  Weight: 72.109 kg

DRUGS (30)
  1. ACETYLSALICYLIC ACID SRT [Concomitant]
     Dosage: 81 MG, QD
     Route: 048
  2. AMLODIPINE W/BENAZEPRIL [Concomitant]
     Dosage: 10/20MG PER DAY
     Route: 048
  3. AMIODARONE HCL [Concomitant]
     Dosage: 150 MG, UNK
     Route: 042
     Dates: start: 20060525
  4. VERSED [Concomitant]
     Dosage: 2.5 MG, UNK
     Route: 042
     Dates: start: 20060525
  5. DOPAMINE HCL [Concomitant]
     Dosage: TITRATION
     Route: 042
     Dates: start: 20060525
  6. PRIMACOR [Concomitant]
     Dosage: 25 MILLIGRAMS
     Route: 042
     Dates: start: 20060525
  7. TOPROL-XL [Concomitant]
     Dosage: 200 MG, QD
  8. PLATELETS [Concomitant]
     Dosage: 550 ML
     Route: 042
     Dates: start: 20060525
  9. LASIX [Concomitant]
     Dosage: 40 MG, BID
     Route: 048
  10. LASIX [Concomitant]
     Dosage: UNK
     Route: 042
     Dates: start: 20060525
  11. HEPARIN [Concomitant]
     Dosage: 25,000
     Route: 042
     Dates: start: 20060525
  12. METOPROLOL TARTRATE [Concomitant]
  13. HEPARIN [Concomitant]
     Dosage: 2900 UNITS
     Route: 042
     Dates: start: 20060525
  14. ACETYLSALICYLIC ACID SRT [Concomitant]
     Dosage: 81 MG, QD
  15. PROTAMINE SULFATE [Concomitant]
     Dosage: UNK
     Route: 042
     Dates: start: 20060525
  16. CRESTOR [Concomitant]
     Dosage: 10 MG, QD
  17. TRASYLOL [Suspect]
     Indication: CORONARY ARTERY BYPASS
     Dosage: TEST DOSE (1ML) LOADING DOSE (199 ML LOADING DOSE)
     Route: 042
     Dates: start: 20060525, end: 20060525
  18. TRASYLOL [Suspect]
     Indication: MITRAL VALVE REPLACEMENT
     Dosage: 199 ML
     Route: 042
     Dates: start: 20060525, end: 20060525
  19. PLATELETS [Concomitant]
     Dosage: UNK
     Dates: start: 20060525
  20. FRESH FROZEN PLASMA [Concomitant]
     Dosage: 2 UNITS
     Route: 042
     Dates: start: 20060525
  21. NATRECOR [Concomitant]
     Dosage: UNK
     Route: 042
     Dates: start: 20060525
  22. SODIUM NITROPRUSSIDE [Concomitant]
     Dosage: TITRATION
     Route: 042
     Dates: start: 20060525
  23. LEVOPHED [Concomitant]
     Dosage: TITRATED
     Route: 042
     Dates: start: 20060525
  24. EPINEPHRINE [Concomitant]
     Dosage: TITRATED
     Route: 042
     Dates: start: 20060525
  25. RED BLOOD CELLS [Concomitant]
     Dosage: UNK
     Dates: start: 20060525
  26. FRESH FROZEN PLASMA [Concomitant]
     Dosage: UNK
     Dates: start: 20050525
  27. FENTANYL-100 [Concomitant]
     Dosage: UNK
     Route: 042
     Dates: start: 20060525
  28. LOTREL [Concomitant]
     Dosage: 20 MG, QD
  29. RED BLOOD CELLS [Concomitant]
     Dosage: 2747 ML
     Route: 042
     Dates: start: 20060525
  30. DOBUTAMINE HYDROCHLORIDE [Concomitant]
     Dosage: TITRATION
     Route: 042
     Dates: start: 20060525

REACTIONS (11)
  - FEAR [None]
  - RENAL FAILURE [None]
  - ANXIETY [None]
  - STRESS [None]
  - RENAL IMPAIRMENT [None]
  - INJURY [None]
  - UNEVALUABLE EVENT [None]
  - PAIN [None]
  - MULTI-ORGAN FAILURE [None]
  - SHOCK [None]
  - EMOTIONAL DISTRESS [None]
